FAERS Safety Report 4584208-0 (Version None)
Quarter: 2005Q1

REPORT INFORMATION
  Report Type: 
  Country: None (occurrence: None)
  Receive Date: 20050216
  Receipt Date: 20050204
  Transmission Date: 20050727
  Serious: Yes (Other)
  Sender: FDA-Public Use
  Company Number: GB-GLAXOSMITHKLINE-B0369950A

PATIENT

DRUGS (1)
  1. AUGMENTIN '125' [Suspect]
     Indication: GENITOURINARY TRACT INFECTION
     Dosage: 375MG THREE TIMES PER DAY
     Route: 048

REACTIONS (1)
  - CONVULSION [None]
